FAERS Safety Report 6832246-7 (Version None)
Quarter: 2010Q3

REPORT INFORMATION
  Report Type: 
  Country: None (occurrence: None)
  Receive Date: 20100707
  Receipt Date: 20100628
  Transmission Date: 20110219
  Serious: Yes (Other)
  Sender: FDA-Public Use
  Company Number: 2010SP036369

PATIENT
  Age: 13 Year
  Sex: Female

DRUGS (1)
  1. CLARITYN (LORATADINE /00917501/) (10 MG) [Suspect]
     Indication: PRODUCT USED FOR UNKNOWN INDICATION
     Dosage: 20 MG

REACTIONS (1)
  - PSYCHOTIC DISORDER [None]
